FAERS Safety Report 5296118-4 (Version None)
Quarter: 2007Q2

REPORT INFORMATION
  Report Type: 
  Country: None (occurrence: None)
  Receive Date: 20070413
  Receipt Date: 20070402
  Transmission Date: 20071010
  Serious: Yes (Hospitalization)
  Sender: FDA-Public Use
  Company Number: PHBS2007CN05441

PATIENT
  Age: 77 Year
  Sex: Female

DRUGS (1)
  1. MIACALCIN [Suspect]
     Indication: BACK PAIN
     Dosage: 50 IU, ONCE/SINGLE
     Route: 058
     Dates: start: 20070327, end: 20070327

REACTIONS (10)
  - ANGINA UNSTABLE [None]
  - BLOOD CREATINE PHOSPHOKINASE INCREASED [None]
  - BLOOD CREATINE PHOSPHOKINASE MB [None]
  - CHEST DISCOMFORT [None]
  - CHEST PAIN [None]
  - DYSPNOEA [None]
  - ELECTROCARDIOGRAM ABNORMAL [None]
  - HYPERHIDROSIS [None]
  - NAUSEA [None]
  - VOMITING [None]
